FAERS Safety Report 5497203-4 (Version None)
Quarter: 2007Q4

REPORT INFORMATION
  Report Type: 
  Country: None (occurrence: None)
  Receive Date: 20071025
  Receipt Date: 20060908
  Transmission Date: 20080405
  Serious: No
  Sender: FDA-Public Use
  Company Number: A0619554A

PATIENT
  Age: 21 Year
  Sex: Male

DRUGS (2)
  1. ADVAIR DISKUS 100/50 [Suspect]
     Indication: BRONCHITIS
     Route: 055
     Dates: start: 20060904
  2. ZITHROMAX [Concomitant]

REACTIONS (3)
  - COUGH [None]
  - DIARRHOEA [None]
  - DRUG ADMINISTRATION ERROR [None]
